FAERS Safety Report 18557952 (Version 3)
Quarter: 2020Q4

REPORT INFORMATION
  Report Type: Spontaneous
  Country: GB (occurrence: GB)
  Receive Date: 20201130
  Receipt Date: 20201223
  Transmission Date: 20210114
  Serious: Yes (Hospitalization, Other)
  Sender: FDA-Public Use
  Company Number: GB-AUROBINDO-AUR-APL-2020-058092

PATIENT
  Age: 20 Year
  Sex: Male

DRUGS (3)
  1. RIFAMPICIN [Suspect]
     Active Substance: RIFAMPIN
     Indication: SKIN TEST
     Dosage: 300 MILLIGRAM
     Route: 048
  2. RANITIDINE. [Suspect]
     Active Substance: RANITIDINE
     Indication: SKIN TEST
     Dosage: UNK
     Route: 065
  3. VANCOMYCIN [Suspect]
     Active Substance: VANCOMYCIN
     Indication: PRODUCT USED FOR UNKNOWN INDICATION
     Dosage: UNK
     Route: 065

REACTIONS (11)
  - Erythema multiforme [Recovered/Resolved]
  - Application site vesicles [Recovered/Resolved]
  - Drug hypersensitivity [Recovered/Resolved]
  - Drug reaction with eosinophilia and systemic symptoms [Recovered/Resolved]
  - Type IV hypersensitivity reaction [Recovered/Resolved]
  - Lymphadenopathy [Recovered/Resolved]
  - Application site erythema [Recovered/Resolved]
  - Swelling face [Recovered/Resolved]
  - Lymphopenia [Recovered/Resolved]
  - Application site pruritus [Recovered/Resolved]
  - Rash [Recovered/Resolved]

NARRATIVE: CASE EVENT DATE: 201607
